FAERS Safety Report 7820211-2 (Version None)
Quarter: 2011Q4

REPORT INFORMATION
  Report Type: 
  Country: None (occurrence: None)
  Receive Date: 20111018
  Receipt Date: 20111004
  Transmission Date: 20120403
  Serious: Yes (Hospitalization)
  Sender: FDA-Public Use
  Company Number: US-ELI_LILLY_AND_COMPANY-US201110001831

PATIENT
  Sex: Male

DRUGS (2)
  1. TRILEPTAL [Concomitant]
  2. STRATTERA [Suspect]
     Dosage: 50 MG, UNK

REACTIONS (1)
  - ADVERSE EVENT [None]
